FAERS Safety Report 14783917 (Version 1)
Quarter: 2018Q2

REPORT INFORMATION
  Report Type: Spontaneous
  Country: TR (occurrence: TR)
  Receive Date: 20180420
  Receipt Date: 20180420
  Transmission Date: 20180711
  Serious: Yes (Life-Threatening, Hospitalization, Other)
  Sender: FDA-Public Use
  Company Number: TR-MACLEODS PHARMACEUTICALS US LTD-MAC2016002889

PATIENT

DRUGS (4)
  1. ESCITALOPRAM OXALATE. [Suspect]
     Active Substance: ESCITALOPRAM OXALATE
     Indication: DEPRESSION
     Dosage: 1400 MG, SINGLE
     Route: 065
  2. ESCITALOPRAM OXALATE. [Interacting]
     Active Substance: ESCITALOPRAM OXALATE
     Indication: SUICIDE ATTEMPT
  3. MOCLOBEMIDE [Interacting]
     Active Substance: MOCLOBEMIDE
     Indication: DEPRESSION
     Dosage: 6000 MG, TOTAL
     Route: 065
  4. MOCLOBEMIDE [Interacting]
     Active Substance: MOCLOBEMIDE
     Indication: SUICIDE ATTEMPT

REACTIONS (15)
  - Overdose [Recovered/Resolved]
  - Restlessness [Recovered/Resolved]
  - Nystagmus [Recovered/Resolved]
  - Drug interaction [Recovered/Resolved]
  - Muscle rigidity [Recovered/Resolved]
  - Rhabdomyolysis [Recovered/Resolved]
  - Hot flush [Recovered/Resolved]
  - Serotonin syndrome [Recovered/Resolved]
  - Tremor [Recovered/Resolved]
  - Mydriasis [Recovered/Resolved]
  - Hyperhidrosis [Recovered/Resolved]
  - Pupillary reflex impaired [Recovered/Resolved]
  - Nervousness [Recovered/Resolved]
  - Loss of consciousness [Recovered/Resolved]
  - Tachycardia [Recovered/Resolved]
